FAERS Safety Report 4694802-4 (Version None)
Quarter: 2005Q2

REPORT INFORMATION
  Report Type: 
  Country: None (occurrence: None)
  Receive Date: 20050620
  Receipt Date: 20050513
  Transmission Date: 20051028
  Serious: Yes (Other)
  Sender: FDA-Public Use
  Company Number: 2005GB00962

PATIENT
  Sex: Female
  Weight: 73 kg

DRUGS (6)
  1. ANASTROZOLE [Suspect]
     Indication: BREAST CANCER
     Route: 048
     Dates: start: 20000927, end: 20050525
  2. RADIOTHERAPY [Suspect]
     Indication: BREAST CANCER
  3. SALBUTAMOL [Concomitant]
     Dosage: 100 MCG PER PUFF
     Route: 055
  4. LATANOPROST [Concomitant]
     Dosage: 50 MCG/ML APPLY IN BOTH EYES
     Route: 047
  5. ATORVASTATIN CALCIUM [Concomitant]
  6. BENDROFLUMETHIAZIDE [Concomitant]

REACTIONS (1)
  - SKIN REACTION [None]
